FAERS Safety Report 5574796-X (Version None)
Quarter: 2007Q4

REPORT INFORMATION
  Report Type: 
  Country: None (occurrence: None)
  Receive Date: 20071226
  Receipt Date: 20071226
  Transmission Date: 20080405
  Serious: No
  Sender: FDA-Public Use
  Company Number: None

PATIENT
  Sex: Female
  Weight: 63 kg

DRUGS (4)
  1. FLUOROURACIL [Suspect]
     Dosage: 6250 MG
  2. MITOMYCIN [Suspect]
     Dosage: 16.3 MG
  3. ASPIRIN [Concomitant]
  4. ATENOLOL [Concomitant]

REACTIONS (1)
  - NEUTROPHIL COUNT DECREASED [None]
